FAERS Safety Report 16035169 (Version 1)
Quarter: 2019Q1

REPORT INFORMATION
  Report Type: Spontaneous
  Country: DE (occurrence: DE)
  Receive Date: 20190305
  Receipt Date: 20190305
  Transmission Date: 20190418
  Serious: Yes (Other)
  Sender: FDA-Public Use
  Company Number: DE-ALVOGEN-2019-ALVOGEN-098651

PATIENT
  Age: 67 Year
  Sex: Male

DRUGS (4)
  1. AZATHIOPRINE. [Suspect]
     Active Substance: AZATHIOPRINE
     Indication: PEMPHIGOID
  2. DAPSONE. [Suspect]
     Active Substance: DAPSONE
     Indication: PEMPHIGOID
  3. PREDNISOLONE. [Suspect]
     Active Substance: PREDNISOLONE
     Indication: PEMPHIGOID
  4. PREDNISOLONE. [Suspect]
     Active Substance: PREDNISOLONE
     Indication: PEMPHIGOID

REACTIONS (4)
  - Cyanosis [Unknown]
  - Dyspnoea [Unknown]
  - Methaemoglobinaemia [Unknown]
  - Disease progression [Recovered/Resolved]
